FAERS Safety Report 8066741-2 (Version None)
Quarter: 2012Q1

REPORT INFORMATION
  Report Type: 
  Country: None (occurrence: None)
  Receive Date: 20120124
  Receipt Date: 20120118
  Transmission Date: 20120608
  Serious: Yes (Death, Other)
  Sender: FDA-Public Use
  Company Number: US-BAYER-201038723NA

PATIENT
  Age: 64 Year
  Sex: Male
  Weight: 61.224 kg

DRUGS (27)
  1. ISORDIL [Concomitant]
  2. ETOMIDATE [Concomitant]
     Dosage: UNK
     Dates: start: 20041217
  3. HEPARIN [Concomitant]
     Dosage: UNK
     Dates: start: 20041217
  4. ISOSORBIDE DINITRATE [Concomitant]
  5. CLONIDINE [Concomitant]
  6. ONDANSETRON HCL [Concomitant]
     Dosage: 4 MG, UNK
     Route: 042
     Dates: start: 20041217
  7. METOPROLOL TARTRATE [Concomitant]
  8. VERSED [Concomitant]
     Dosage: 2 MG, UNK
     Route: 042
     Dates: start: 20041217
  9. VANCOMYCIN [Concomitant]
     Dosage: UNK
     Dates: start: 20041217
  10. LIDOCAINE [Concomitant]
     Dosage: UNK
     Dates: start: 20041217
  11. HUMULIN 70/30 [Concomitant]
  12. HYDRALAZINE HCL [Concomitant]
  13. ZIAC [Concomitant]
     Dosage: 10 MG, ONCE
     Route: 048
  14. NITROGLYCERIN [Concomitant]
     Dosage: 0.4 MG, PRN
  15. PROTAMINE SULFATE [Concomitant]
     Dosage: UNK
     Dates: start: 20041217
  16. NITROGLYCERIN [Concomitant]
  17. CALCIUM CHLORIDE [Concomitant]
     Dosage: UNK
     Dates: start: 20041217
  18. TRASYLOL [Suspect]
     Indication: CORONARY ARTERY BYPASS
     Dosage: 25 CC/HR
     Route: 042
     Dates: start: 20041217, end: 20041217
  19. RED BLOOD CELLS [Concomitant]
     Dosage: 2 U, UNK
  20. PLATELETS [Concomitant]
  21. LEVOTHYROXINE SODIUM [Concomitant]
  22. NORVASC [Concomitant]
  23. KEFLEX [Concomitant]
  24. FENTANYL [Concomitant]
     Dosage: UNK
     Dates: start: 20041217
  25. NIMBEX [Concomitant]
     Dosage: UNK
     Dates: start: 20041217
  26. FRESH FROZEN PLASMA [Concomitant]
     Dosage: 1 U, UNK
  27. LASIX [Concomitant]

REACTIONS (12)
  - RENAL INJURY [None]
  - EMOTIONAL DISTRESS [None]
  - FEAR [None]
  - RENAL IMPAIRMENT [None]
  - STRESS [None]
  - UNEVALUABLE EVENT [None]
  - DEATH [None]
  - INJURY [None]
  - MULTI-ORGAN FAILURE [None]
  - PAIN [None]
  - RENAL FAILURE [None]
  - ANXIETY [None]
